FAERS Safety Report 8820810 (Version 1)
Quarter: 2012Q4

REPORT INFORMATION
  Report Type: 
  Country: JP (occurrence: JP)
  Receive Date: 20121002
  Receipt Date: 20121002
  Transmission Date: 20130627
  Serious: Yes (Other)
  Sender: FDA-Public Use
  Company Number: JP-ASTRAZENECA-2012SE60224

PATIENT

DRUGS (8)
  1. SEROQUEL [Suspect]
     Indication: DEPRESSION
     Dosage: reduced dose
     Route: 064
     Dates: start: 20090117
  2. SEROQUEL [Suspect]
     Indication: DEPRESSION
     Route: 063
     Dates: start: 20090117
  3. TRYPTANOL [Concomitant]
  4. SEDIEL [Concomitant]
     Route: 048
     Dates: start: 200901
  5. GASMOTIN [Concomitant]
     Route: 048
     Dates: start: 200901
  6. TEGRETOL [Concomitant]
     Route: 048
     Dates: start: 200901
  7. GLYCYRON [Concomitant]
  8. URSO [Concomitant]

REACTIONS (3)
  - Speech disorder developmental [Unknown]
  - Exposure during breast feeding [Unknown]
  - Foetal exposure during pregnancy [Recovered/Resolved]
